FAERS Safety Report 9143228 (Version 1)
Quarter: 2013Q1

REPORT INFORMATION
  Report Type: Spontaneous
  Country: US (occurrence: US)
  Receive Date: 20130306
  Receipt Date: 20130306
  Transmission Date: 20140127
  Serious: No
  Sender: FDA-Public Use
  Company Number: US-ENDO PHARMACEUTICALS INC.-OPER20110073

PATIENT
  Age: 35 Year
  Sex: Male

DRUGS (3)
  1. OPANA ER [Suspect]
     Indication: PAIN
     Route: 048
     Dates: start: 201012
  2. OPANA ER [Suspect]
     Route: 048
  3. ROXICODONE [Concomitant]
     Indication: PAIN

REACTIONS (1)
  - Migraine [Not Recovered/Not Resolved]
